FAERS Safety Report 8066838-7 (Version None)
Quarter: 2012Q1

REPORT INFORMATION
  Report Type: 
  Country: None (occurrence: None)
  Receive Date: 20120124
  Receipt Date: 20120123
  Transmission Date: 20120608
  Serious: Yes (Life-Threatening)
  Sender: FDA-Public Use
  Company Number: PHHY2011BR95835

PATIENT
  Age: 65 Year
  Sex: Male

DRUGS (3)
  1. MASSAGEOL [Concomitant]
     Indication: INTERVERTEBRAL DISC PROTRUSION
     Dosage: ONCE A DAY
     Route: 062
  2. TORSILAX [Concomitant]
     Indication: INTERVERTEBRAL DISC PROTRUSION
     Dosage: 2 OR 3 TABLETS PER DAY
     Route: 048
  3. CATAFLAM [Suspect]
     Indication: INTERVERTEBRAL DISC PROTRUSION
     Dosage: 1 DF, QD
     Route: 054

REACTIONS (7)
  - CONDITION AGGRAVATED [None]
  - ANXIETY [None]
  - BONE PAIN [None]
  - GAIT DISTURBANCE [None]
  - PAIN [None]
  - ARTHRALGIA [None]
  - PAIN IN EXTREMITY [None]
